FAERS Safety Report 9109560 (Version 2)
Quarter: 2013Q1

REPORT INFORMATION
  Report Type: Spontaneous
  Country: US (occurrence: US)
  Receive Date: 20130222
  Receipt Date: 20130305
  Transmission Date: 20140127
  Serious: No
  Sender: FDA-Public Use
  Company Number: US-009507513-1302USA003623

PATIENT
  Sex: Female

DRUGS (2)
  1. SAPHRIS [Suspect]
     Indication: BIPOLAR DISORDER
     Dosage: UNK
     Route: 060
     Dates: start: 2013
  2. VYVANSE [Concomitant]

REACTIONS (5)
  - Dysgeusia [Not Recovered/Not Resolved]
  - Fatigue [Not Recovered/Not Resolved]
  - Muscle twitching [Not Recovered/Not Resolved]
  - Oral discomfort [Not Recovered/Not Resolved]
  - Product quality issue [Unknown]
